FAERS Safety Report 19608037 (Version 1)
Quarter: 2021Q3

REPORT INFORMATION
  Report Type: Other
  Country: JP (occurrence: JP)
  Receive Date: 20210726
  Receipt Date: 20210726
  Transmission Date: 20211014
  Serious: Yes (Death, Other)
  Sender: FDA-Public Use
  Company Number: JP-ROCHE-2154230

PATIENT
  Age: 49 Year
  Sex: Male
  Weight: 48 kg

DRUGS (6)
  1. RITUXAN [Suspect]
     Active Substance: RITUXIMAB
     Indication: LUNG TRANSPLANT REJECTION
     Route: 041
     Dates: start: 20150125, end: 20150125
  2. SAXIZON [Concomitant]
     Active Substance: HYDROCORTISONE SODIUM SUCCINATE
     Indication: PROPHYLAXIS
     Route: 065
     Dates: start: 20150125, end: 20150125
  3. THYMOGLOBULINE [Concomitant]
     Active Substance: LAPINE T-LYMPHOCYTE IMMUNE GLOBULIN
     Indication: COMPLICATIONS OF TRANSPLANTED LUNG
     Route: 042
     Dates: start: 20150119
  4. POLARAMINE [Concomitant]
     Active Substance: DEXCHLORPHENIRAMINE MALEATE
     Indication: PROPHYLAXIS
     Route: 065
     Dates: start: 20150125, end: 20150125
  5. HUMAN NORMAL IMMUNOGLOBULIN [Concomitant]
     Active Substance: HUMAN IMMUNOGLOBULIN G
     Indication: LUNG TRANSPLANT REJECTION
     Route: 042
     Dates: start: 20150115
  6. RITUXAN [Suspect]
     Active Substance: RITUXIMAB
     Route: 041
     Dates: start: 20150125, end: 20150125

REACTIONS (7)
  - Epididymitis [Recovering/Resolving]
  - White blood cell count decreased [Recovering/Resolving]
  - Bronchitis [Fatal]
  - Pneumonia [Fatal]
  - Retinal aneurysm rupture [Recovering/Resolving]
  - Cytomegalovirus test positive [Recovering/Resolving]
  - Off label use [Unknown]

NARRATIVE: CASE EVENT DATE: 20150129
